FAERS Safety Report 4922051-0 (Version None)
Quarter: 2006Q1

REPORT INFORMATION
  Report Type: 
  Country: None (occurrence: None)
  Receive Date: 20060224
  Receipt Date: 20060216
  Transmission Date: 20060701
  Serious: Yes (Hospitalization)
  Sender: FDA-Public Use
  Company Number: 2006PK00381

PATIENT
  Age: 77 Year
  Sex: Male

DRUGS (13)
  1. METOPROLOL SUCCINATE [Suspect]
     Route: 048
     Dates: end: 20060124
  2. ATACAND [Suspect]
     Route: 048
  3. CARDURA [Suspect]
     Route: 048
  4. NORVASC [Suspect]
     Route: 048
  5. TORSEMIDE [Suspect]
  6. ASPIRIN [Concomitant]
     Route: 048
  7. PLAVIX [Concomitant]
     Route: 048
  8. CORDARONE [Concomitant]
     Dosage: FIVE RIMES A WEEK
  9. PANTOZOL [Concomitant]
     Route: 048
  10. TEMESTA [Concomitant]
     Route: 048
  11. MOTILIUM [Concomitant]
  12. DEROXAT [Concomitant]
     Route: 048
  13. MIXTARD HUMAN 70/30 [Concomitant]
     Route: 058

REACTIONS (2)
  - DIZZINESS [None]
  - HYPOTENSION [None]
